FAERS Safety Report 24057514 (Version 1)
Quarter: 2024Q3

REPORT INFORMATION
  Report Type: Spontaneous
  Country: CN (occurrence: CN)
  Receive Date: 20240706
  Receipt Date: 20240706
  Transmission Date: 20241016
  Serious: Yes (Other)
  Sender: BAXTER
  Company Number: None

PATIENT
  Age: 28 Year
  Sex: Male

DRUGS (3)
  1. MANNITOL [Suspect]
     Active Substance: MANNITOL
     Indication: Injury
     Dosage: 250 ML, ONE TIME IN ONE DAY
     Route: 041
     Dates: start: 20240616, end: 20240616
  2. SODIUM CHLORIDE [Suspect]
     Active Substance: SODIUM CHLORIDE
     Indication: Medication dilution
     Dosage: (0.9%) 250 ML, QD, USED TO DILUTE WITH 30 MG OF KETOROLAC TROMETHAMINE
     Route: 041
     Dates: start: 20240616, end: 20240616
  3. KETOROLAC TROMETHAMINE [Suspect]
     Active Substance: KETOROLAC TROMETHAMINE
     Indication: Injury
     Dosage: 30 MG, QD, DILUTED WITH 250 ML OF 0.9% SODIUM CHLORIDE
     Route: 041
     Dates: start: 20240616, end: 20240616

REACTIONS (1)
  - Rash [Recovering/Resolving]

NARRATIVE: CASE EVENT DATE: 20240616
